FAERS Safety Report 5748701-7 (Version None)
Quarter: 2008Q2

REPORT INFORMATION
  Report Type: 
  Country: None (occurrence: None)
  Receive Date: 20080521
  Receipt Date: 20080512
  Transmission Date: 20081010
  Serious: Yes (Other)
  Sender: FDA-Public Use
  Company Number: GXKR2008NL04395

PATIENT
  Sex: Male

DRUGS (1)
  1. CYCLOSPORINE [Suspect]
     Indication: IMMUNOSUPPRESSION

REACTIONS (5)
  - HAEMODIALYSIS [None]
  - INTESTINAL OBSTRUCTION [None]
  - PERITONEAL DIALYSIS [None]
  - RENAL FAILURE [None]
  - SCLEROSING ENCAPSULATING PERITONITIS [None]
